FAERS Safety Report 7215204-2 (Version None)
Quarter: 2011Q1

REPORT INFORMATION
  Report Type: 
  Country: None (occurrence: None)
  Receive Date: 20110107
  Receipt Date: 20101026
  Transmission Date: 20110831
  Serious: No
  Sender: FDA-Public Use
  Company Number: A0888796A

PATIENT
  Age: 48 Year
  Sex: Male

DRUGS (1)
  1. LOVAZA [Suspect]
     Dosage: 1CAP PER DAY
     Route: 048
     Dates: start: 20100901

REACTIONS (2)
  - FEELING ABNORMAL [None]
  - HEADACHE [None]
